FAERS Safety Report 15786008 (Version 1)
Quarter: 2019Q1

REPORT INFORMATION
  Report Type: Spontaneous
  Country: BR (occurrence: BR)
  Receive Date: 20190103
  Receipt Date: 20190103
  Transmission Date: 20190417
  Serious: Yes (Hospitalization, Other)
  Sender: FDA-Public Use
  Company Number: BR-TEVA-2019-BR-994567

PATIENT
  Sex: Male

DRUGS (2)
  1. BEVACIZUMABE [Concomitant]
     Dates: start: 20181210
  2. TEVAOXALI [Suspect]
     Active Substance: OXALIPLATIN
     Route: 042
     Dates: start: 20181210

REACTIONS (6)
  - Hypotension [Unknown]
  - Pruritus [Unknown]
  - Malaise [Unknown]
  - Hyperhidrosis [Unknown]
  - Flushing [Unknown]
  - Tremor [Unknown]
